FAERS Safety Report 5443213-2 (Version None)
Quarter: 2007Q3

REPORT INFORMATION
  Report Type: 
  Country: None (occurrence: None)
  Receive Date: 20070905
  Receipt Date: 20070829
  Transmission Date: 20080115
  Serious: Yes (Hospitalization)
  Sender: FDA-Public Use
  Company Number: CH-AVENTIS-200714125EU

PATIENT
  Age: 86 Year
  Sex: Female

DRUGS (7)
  1. LASIX [Suspect]
     Indication: HYPERTENSION
     Route: 048
  2. NITRODERM [Suspect]
     Indication: ESSENTIAL HYPERTENSION
     Route: 062
     Dates: start: 20070727
  3. DILATREND [Suspect]
     Indication: HYPERTENSION
     Route: 048
  4. ADALAT [Suspect]
     Indication: HYPERTENSION
  5. RENITEN                            /00574902/ [Suspect]
     Indication: HYPERTENSION
     Route: 048
  6. ASPIRIN [Suspect]
     Route: 048
  7. SORTIS                             /01326101/ [Suspect]
     Route: 048

REACTIONS (8)
  - ANAPHYLACTIC REACTION [None]
  - BRONCHOSPASM [None]
  - DRUG INEFFECTIVE [None]
  - GENERAL PHYSICAL HEALTH DETERIORATION [None]
  - HYPOTENSION [None]
  - HYPOTONIA [None]
  - STRIDOR [None]
  - URTICARIA [None]
